FAERS Safety Report 14785113 (Version 1)
Quarter: 2018Q2

REPORT INFORMATION
  Report Type: Spontaneous
  Country: PT (occurrence: PT)
  Receive Date: 20180420
  Receipt Date: 20180420
  Transmission Date: 20180711
  Serious: Yes (Other)
  Sender: FDA-Public Use
  Company Number: PT-PFIZER INC-2018156376

PATIENT
  Age: 78 Year
  Sex: Male

DRUGS (2)
  1. DOCETAXEL. [Suspect]
     Active Substance: DOCETAXEL
     Dosage: 7.5 MG/M2, EVERY 3 WEEKS
     Route: 051
     Dates: start: 201701, end: 201701
  2. DOCETAXEL. [Suspect]
     Active Substance: DOCETAXEL
     Indication: PROSTATE CANCER
     Dosage: 7.5 MG/M2, EVERY 3 WEEKS
     Route: 051
     Dates: start: 201609, end: 201609

REACTIONS (10)
  - Eastern Cooperative Oncology Group performance status worsened [Unknown]
  - Nail toxicity [Unknown]
  - Neurotoxicity [Unknown]
  - Febrile neutropenia [Unknown]
  - Leukocytosis [Unknown]
  - Leukaemoid reaction [Unknown]
  - Anaemia [Unknown]
  - Haematotoxicity [Unknown]
  - Prostatic specific antigen increased [Unknown]
  - Neutropenia [Unknown]

NARRATIVE: CASE EVENT DATE: 201610
